FAERS Safety Report 13629342 (Version 1)
Quarter: 2017Q2

REPORT INFORMATION
  Report Type: Spontaneous
  Country: US (occurrence: US)
  Receive Date: 20170531
  Receipt Date: 20170531
  Transmission Date: 20170830
  Serious: No
  Sender: FDA-Public Use
  Company Number: US-ASTELLAS-1147990

PATIENT
  Sex: Female
  Weight: 55 kg

DRUGS (2)
  1. TARCEVA [Suspect]
     Active Substance: ERLOTINIB HYDROCHLORIDE
     Indication: LUNG NEOPLASM MALIGNANT
     Route: 048
     Dates: start: 20121002
  2. KEPPRA [Suspect]
     Active Substance: LEVETIRACETAM
     Indication: SEIZURE
     Route: 048

REACTIONS (6)
  - Rash pustular [Not Recovered/Not Resolved]
  - Rash [Unknown]
  - Oral mucosal eruption [Unknown]
  - Fatigue [Unknown]
  - Skin burning sensation [Unknown]
  - Alopecia [Unknown]
